FAERS Safety Report 7003438-1 (Version None)
Quarter: 2010Q3

REPORT INFORMATION
  Report Type: 
  Country: None (occurrence: None)
  Receive Date: 20100920
  Receipt Date: 20100826
  Transmission Date: 20110219
  Serious: No
  Sender: FDA-Public Use
  Company Number: US-PFIZER INC-2010090754

PATIENT
  Sex: Female
  Weight: 63 kg

DRUGS (5)
  1. GEODON [Suspect]
     Indication: BIPOLAR II DISORDER
     Dosage: 20 MG, DAILY
     Route: 048
     Dates: start: 20091101
  2. ADDERALL 10 [Concomitant]
     Indication: BIPOLAR II DISORDER
     Dosage: UNK
  3. SELEGILINE [Concomitant]
     Indication: BIPOLAR II DISORDER
     Dosage: UNK
  4. DEPAKOTE [Concomitant]
     Indication: BIPOLAR II DISORDER
     Dosage: UNK
  5. CLONAZEPAM [Concomitant]
     Indication: BIPOLAR II DISORDER
     Dosage: UNK

REACTIONS (1)
  - VAGINITIS BACTERIAL [None]
